FAERS Safety Report 7425153-2 (Version None)
Quarter: 2011Q2

REPORT INFORMATION
  Report Type: 
  Country: None (occurrence: None)
  Receive Date: 20110412
  Receipt Date: 20110328
  Transmission Date: 20111010
  Serious: Yes (Other)
  Sender: FDA-Public Use
  Company Number: 1000019022

PATIENT
  Age: 85 Year
  Sex: Female
  Weight: 49 kg

DRUGS (7)
  1. MEMANTINE [Suspect]
     Indication: DEMENTIA
     Dosage: 10 MG (10 MG,1 IN 1 D), ORAL
     Route: 048
     Dates: start: 20101130, end: 20101213
  2. SECTRAL [Concomitant]
  3. ALDACTAZINE (ALTIZIDE, SPIRONOLACTONE) (ALTIZIDE, SPIRONOLACTONE) [Concomitant]
  4. LEXOMIL (BROMAZEPAM) [Concomitant]
  5. SERESTA (OXAZEPAM) (TABLETS) (OXAZEPAM) [Concomitant]
  6. AMLOR (AMLODIPINE  BESTILATE) (AMLODIPINE BESTILATE) [Concomitant]
  7. DEROXAT (PAROXETINE HYDROCHLORIDE) (TABLETS) (PAROXETINE HYDROCHLORIDE [Concomitant]

REACTIONS (5)
  - AMNESIA [None]
  - BRIEF PSYCHOTIC DISORDER WITH MARKED STRESSORS [None]
  - HALLUCINATION [None]
  - AGGRESSION [None]
  - ANXIETY [None]
